FAERS Safety Report 10081212 (Version 1)
Quarter: 2014Q2

REPORT INFORMATION
  Report Type: Spontaneous
  Country: US (occurrence: US)
  Receive Date: 20140416
  Receipt Date: 20140416
  Transmission Date: 20141212
  Serious: No
  Sender: FDA-Public Use
  Company Number: US-PFIZER INC-2014103597

PATIENT
  Age: 55 Year
  Sex: Male
  Weight: 86.17 kg

DRUGS (1)
  1. VIAGRA [Suspect]
     Indication: ERECTILE DYSFUNCTION
     Dosage: 100 MG, DAILY
     Dates: start: 201403

REACTIONS (1)
  - Drug effect incomplete [Unknown]
